FAERS Safety Report 10747901 (Version 2)
Quarter: 2015Q2

REPORT INFORMATION
  Report Type: Report from Study
  Country: US (occurrence: None)
  Receive Date: 20150120
  Receipt Date: 20150420
  Transmission Date: 20150821
  Serious: No
  Sender: FDA-Public Use
  Company Number: AEGR001021

PATIENT
  Age: 55 Year
  Sex: Female
  Weight: 82.5 kg

DRUGS (9)
  1. SENOKOT (SENNA ALEXANDRINA FRUIT) [Concomitant]
  2. TOPROL (METOPROLOL SUCCINATE) [Concomitant]
  3. CELEXA [Concomitant]
     Active Substance: CITALOPRAM HYDROBROMIDE
  4. PLAVIX (CLOPIDOGREL BISULFATE) [Concomitant]
  5. ACTONEL (RISEDRONATE SODIUM) [Concomitant]
  6. VITAMIN E (TOCOPHERYL ACETATE) [Concomitant]
  7. DEXILANT [Concomitant]
     Active Substance: DEXLANSOPRAZOLE
  8. JUXTAPID [Suspect]
     Active Substance: LOMITAPIDE MESYLATE
     Indication: TYPE IIA HYPERLIPIDAEMIA
     Route: 048
     Dates: start: 20140715, end: 20141109
  9. OMEGA (CONVALLARIA MAJALIS, CRATAEGUS LAEVIGATA, PROXYPHYLLINE) [Concomitant]

REACTIONS (3)
  - Weight decreased [None]
  - Abdominal distension [None]
  - Flatulence [None]

NARRATIVE: CASE EVENT DATE: 2014
